FAERS Safety Report 13080372 (Version 1)
Quarter: 2017Q1

REPORT INFORMATION
  Report Type: Spontaneous
  Country: US (occurrence: US)
  Receive Date: 20170103
  Receipt Date: 20170103
  Transmission Date: 20170428
  Serious: Yes (Death, Hospitalization, Other)
  Sender: FDA-Public Use
  Company Number: US-GLAXOSMITHKLINE-US2016GSK193556

PATIENT
  Age: 19 Year
  Sex: Female

DRUGS (7)
  1. VENLAFAXINE [Suspect]
     Active Substance: VENLAFAXINE HYDROCHLORIDE
     Route: 048
  2. BUPROPION. [Suspect]
     Active Substance: BUPROPION
     Route: 048
  3. ATOMOXETINE [Suspect]
     Active Substance: ATOMOXETINE
     Route: 048
  4. RISPERIDONE. [Suspect]
     Active Substance: RISPERIDONE
     Route: 048
  5. BUTALBITAL [Suspect]
     Active Substance: BUTALBITAL
     Route: 048
  6. FLUOXETIN [Suspect]
     Active Substance: FLUOXETINE HYDROCHLORIDE
     Route: 048
  7. CLONAZEPAM. [Suspect]
     Active Substance: CLONAZEPAM
     Route: 048

REACTIONS (3)
  - Overdose [Fatal]
  - Cardio-respiratory arrest [Unknown]
  - Completed suicide [Fatal]
